FAERS Safety Report 11976445 (Version 1)
Quarter: 2016Q1

REPORT INFORMATION
  Report Type: Spontaneous
  Country: US (occurrence: None)
  Receive Date: 20160128
  Receipt Date: 20160128
  Transmission Date: 20160526
  Serious: Yes (Hospitalization)
  Sender: FDA-Public Use
  Company Number: None

PATIENT
  Age: 64 Year
  Sex: Female

DRUGS (2)
  1. METHADONE [Suspect]
     Active Substance: METHADONE HYDROCHLORIDE
     Indication: PAIN
     Route: 048
     Dates: start: 20151101, end: 20151124
  2. OXYCODONE [Suspect]
     Active Substance: OXYCODONE
     Route: 048
     Dates: start: 20151001, end: 20151124

REACTIONS (3)
  - Pneumonia aspiration [None]
  - Respiratory distress [None]
  - Depression [None]

NARRATIVE: CASE EVENT DATE: 20151124
